FAERS Safety Report 7475725-4 (Version None)
Quarter: 2011Q2

REPORT INFORMATION
  Report Type: 
  Country: None (occurrence: None)
  Receive Date: 20110512
  Receipt Date: 20110429
  Transmission Date: 20111010
  Serious: Yes (Hospitalization)
  Sender: FDA-Public Use
  Company Number: DE-ROCHE-776714

PATIENT
  Sex: Male
  Weight: 62.2 kg

DRUGS (1)
  1. INTERFERON ALFA [Suspect]
     Indication: RENAL CELL CARCINOMA
     Route: 058
     Dates: start: 20110224

REACTIONS (1)
  - HYPERBILIRUBINAEMIA [None]
